FAERS Safety Report 5962213-7 (Version None)
Quarter: 2008Q4

REPORT INFORMATION
  Report Type: 
  Country: None (occurrence: None)
  Receive Date: 20081121
  Receipt Date: 20081113
  Transmission Date: 20090506
  Serious: Yes (Other)
  Sender: FDA-Public Use
  Company Number: PHHY2008JP28350

PATIENT

DRUGS (2)
  1. NEORAL [Suspect]
     Indication: DERMATOMYOSITIS
     Dosage: 75 MG, QD
     Route: 048
  2. NEORAL [Suspect]
     Dosage: 300 MG/DAY
     Route: 048

REACTIONS (1)
  - AGRANULOCYTOSIS [None]
